FAERS Safety Report 4782699-3 (Version None)
Quarter: 2005Q3

REPORT INFORMATION
  Report Type: 
  Country: None (occurrence: None)
  Receive Date: 20050929
  Receipt Date: 20050728
  Transmission Date: 20060218
  Serious: No
  Sender: FDA-Public Use
  Company Number: 412374

PATIENT
  Age: 79 Year
  Sex: Male

DRUGS (4)
  1. COREG [Suspect]
     Indication: DRUG USE FOR UNKNOWN INDICATION
     Dosage: 6.25MG TWICE PER DAY
     Route: 048
  2. LISINOPRIL [Concomitant]
  3. ADVICOR [Concomitant]
  4. GLUCOTROL XL [Concomitant]

REACTIONS (2)
  - ABDOMINAL PAIN UPPER [None]
  - GASTROINTESTINAL PAIN [None]
